FAERS Safety Report 4564090-8 (Version None)
Quarter: 2005Q1

REPORT INFORMATION
  Report Type: 
  Country: None (occurrence: None)
  Receive Date: 20050126
  Receipt Date: 20050113
  Transmission Date: 20050727
  Serious: Yes (Hospitalization)
  Sender: FDA-Public Use
  Company Number: 2005-00153

PATIENT
  Sex: Female

DRUGS (2)
  1. NICARDIPINE HCL [Suspect]
     Indication: PREMATURE LABOUR
     Dosage: 3 MG/HR, INTRAVENOUS
     Route: 042
  2. BETAMETHASONE [Concomitant]

REACTIONS (1)
  - ACUTE PULMONARY OEDEMA [None]
